FAERS Safety Report 5894718-1 (Version None)
Quarter: 2008Q3

REPORT INFORMATION
  Report Type: 
  Country: None (occurrence: None)
  Receive Date: 20080924
  Receipt Date: 20080522
  Transmission Date: 20090109
  Serious: No
  Sender: FDA-Public Use
  Company Number: US-ASTRAZENECA-2008UW10486

PATIENT
  Sex: Male

DRUGS (3)
  1. SEROQUEL XR [Suspect]
     Dosage: 300-600 MG
     Route: 048
  2. DILAUDID [Concomitant]
  3. FENTANYL TRANSDERMAL SYSTEM [Concomitant]

REACTIONS (2)
  - RESPIRATORY RATE DECREASED [None]
  - SEDATION [None]
